FAERS Safety Report 6655029-X (Version None)
Quarter: 2010Q1

REPORT INFORMATION
  Report Type: 
  Country: None (occurrence: None)
  Receive Date: 20100329
  Receipt Date: 20100322
  Transmission Date: 20100710
  Serious: Yes (Other)
  Sender: FDA-Public Use
  Company Number: US-CEPHALON-2010001626

PATIENT
  Sex: Male
  Weight: 77 kg

DRUGS (5)
  1. PROVIGIL [Suspect]
     Indication: SOMNOLENCE
     Route: 048
     Dates: start: 20050101, end: 20050101
  2. PROVIGIL [Suspect]
     Route: 048
     Dates: start: 20050101
  3. CELEBREX [Concomitant]
     Indication: ARTHRITIS
  4. FINASTERIDE [Concomitant]
     Indication: PROSTATIC DISORDER
     Dates: start: 19950101
  5. VITAMINS [Concomitant]

REACTIONS (4)
  - CORONARY ARTERY OCCLUSION [None]
  - POOR QUALITY SLEEP [None]
  - PSYCHOMOTOR HYPERACTIVITY [None]
  - THERAPEUTIC RESPONSE UNEXPECTED [None]
